FAERS Safety Report 8515881-X (Version None)
Quarter: 2012Q3

REPORT INFORMATION
  Report Type: 
  Country: None (occurrence: None)
  Receive Date: 20120717
  Receipt Date: 20120709
  Transmission Date: 20120928
  Serious: Yes (Hospitalization, Other)
  Sender: FDA-Public Use
  Company Number: ES-JNJFOC-20091201637

PATIENT
  Age: 75 Year
  Sex: Female

DRUGS (12)
  1. OMEPRAZOLE [Concomitant]
  2. STRONTIUM RANELATE [Concomitant]
  3. REMICADE [Suspect]
     Dosage: DOSE: 5 UNITS
     Route: 042
     Dates: start: 20080101, end: 20090619
  4. LACTITOL [Concomitant]
  5. CALCIUM [Concomitant]
  6. FOLIC ACID [Concomitant]
  7. DOMPERIDONE [Concomitant]
  8. VITAMIN D [Concomitant]
  9. ACE INHIBITOR [Concomitant]
  10. REMICADE [Suspect]
     Dosage: DOSE: 5 UNITS
     Route: 042
     Dates: start: 20070101
  11. GLUCOSAMINE [Concomitant]
  12. REMICADE [Suspect]
     Indication: RHEUMATOID ARTHRITIS
     Dosage: DOSE: 3 UNITS
     Route: 042
     Dates: start: 20000510

REACTIONS (3)
  - PNEUMONIA PNEUMOCOCCAL [None]
  - THROMBOPHLEBITIS SEPTIC [None]
  - PSORIASIS [None]
